FAERS Safety Report 7678089-6 (Version None)
Quarter: 2011Q3

REPORT INFORMATION
  Report Type: 
  Country: None (occurrence: None)
  Receive Date: 20110811
  Receipt Date: 20110801
  Transmission Date: 20111222
  Serious: Yes (Hospitalization)
  Sender: FDA-Public Use
  Company Number: US-JNJFOC-20100305379

PATIENT
  Sex: Female
  Weight: 50.9 kg

DRUGS (4)
  1. REMICADE [Suspect]
     Indication: COLITIS
     Route: 042
     Dates: start: 20090224
  2. REMICADE [Suspect]
     Route: 042
     Dates: start: 20090224
  3. REMICADE [Suspect]
     Indication: COLITIS ULCERATIVE
     Route: 042
     Dates: start: 20091201
  4. REMICADE [Suspect]
     Route: 042
     Dates: start: 20091201

REACTIONS (1)
  - APPENDICECTOMY [None]
